FAERS Safety Report 18129589 (Version 1)
Quarter: 2020Q3

REPORT INFORMATION
  Report Type: Spontaneous
  Country: US (occurrence: US)
  Receive Date: 20200810
  Receipt Date: 20200810
  Transmission Date: 20201103
  Serious: No
  Sender: FDA-Public Use
  Company Number: US-PERRIGO-19US008362

PATIENT
  Age: 56 Year
  Sex: Female
  Weight: 62.59 kg

DRUGS (2)
  1. LORATADINE. [Suspect]
     Active Substance: LORATADINE
     Indication: HYPERSENSITIVITY
     Dosage: 10 MG, SINGLE
     Route: 048
     Dates: start: 201906, end: 201906
  2. LORATADINE. [Suspect]
     Active Substance: LORATADINE
     Dosage: 1/2 TABLET, SINGLE
     Route: 048
     Dates: start: 201906, end: 201906

REACTIONS (3)
  - Wrong technique in product usage process [Recovered/Resolved]
  - Incorrect dose administered [Recovered/Resolved]
  - Somnolence [Recovered/Resolved]

NARRATIVE: CASE EVENT DATE: 201906
